FAERS Safety Report 24607954 (Version 1)
Quarter: 2024Q4

REPORT INFORMATION
  Report Type: Spontaneous
  Country: US (occurrence: US)
  Receive Date: 20241112
  Receipt Date: 20241112
  Transmission Date: 20250115
  Serious: Yes (Other)
  Sender: BRISTOL-MYERS SQUIBB COMPANY
  Company Number: US-BRISTOL-MYERS SQUIBB COMPANY-2024-173239

PATIENT
  Age: 75 Year
  Sex: Male
  Weight: 100 kg

DRUGS (10)
  1. REVLIMID [Suspect]
     Active Substance: LENALIDOMIDE
     Indication: Plasma cell myeloma
     Dosage: FREQUENCY: ONE D FOR 21 DAYS OFF 7 DAYS
     Route: 048
     Dates: start: 20210630, end: 20241029
  2. CLONIDINE [Concomitant]
     Active Substance: CLONIDINE
  3. FLECAINIDE [Concomitant]
     Active Substance: FLECAINIDE
  4. FOLIC ACID [Concomitant]
     Active Substance: FOLIC ACID
  5. LISINOPRIL [Concomitant]
     Active Substance: LISINOPRIL
  6. METOPROLOL SUCCINATE [Concomitant]
     Active Substance: METOPROLOL SUCCINATE
     Dosage: ER
  7. PANTOPRAZOLE [Concomitant]
     Active Substance: PANTOPRAZOLE
  8. WARFARIN SODIUM [Concomitant]
     Active Substance: WARFARIN SODIUM
  9. TRIAMCINOLONE [Concomitant]
     Active Substance: TRIAMCINOLONE
  10. VITAMIN B12 [Concomitant]
     Active Substance: CYANOCOBALAMIN

REACTIONS (2)
  - Drug ineffective [Unknown]
  - Plasma cell myeloma [Not Recovered/Not Resolved]

NARRATIVE: CASE EVENT DATE: 20241029
